FAERS Safety Report 5055762-X (Version None)
Quarter: 2006Q3

REPORT INFORMATION
  Report Type: 
  Country: None (occurrence: None)
  Receive Date: 20060714
  Receipt Date: 20060705
  Transmission Date: 20061208
  Serious: No
  Sender: FDA-Public Use
  Company Number: 2006-06-0676

PATIENT
  Age: 40 Year
  Sex: Male
  Weight: 83.4619 kg

DRUGS (5)
  1. PEG-INTRON [Suspect]
     Indication: HEPATITIS C
     Dosage: 180 MCG QWK SUBCUTANEOUS
     Route: 058
     Dates: start: 20060515
  2. RIBASPHERE             (RIVAVIRIN) [Suspect]
     Indication: HEPATITIS C
     Dosage: 800 MG QD ORAL
     Route: 048
     Dates: start: 20060515
  3. ALBUTEROL SULFATE AEROSOL SOLUTION [Concomitant]
  4. FLONASE                         PRN NAS AER SPRAY [Concomitant]
     Route: 055
  5. ADVIL [Concomitant]

REACTIONS (1)
  - WHITE BLOOD CELL COUNT DECREASED [None]
